FAERS Safety Report 18855311 (Version 1)
Quarter: 2021Q1

REPORT INFORMATION
  Report Type: Spontaneous
  Country: US (occurrence: US)
  Receive Date: 20210206
  Receipt Date: 20210206
  Transmission Date: 20210420
  Serious: No
  Sender: FDA-Public Use
  Company Number: US-JNJFOC-20210147707

PATIENT
  Age: 51 Year
  Sex: Female

DRUGS (1)
  1. WOMENS ROGAINE UNSCENTED [Suspect]
     Active Substance: MINOXIDIL
     Indication: PRODUCT USED FOR UNKNOWN INDICATION
     Dosage: DOSE: 1/2 CAPFUL ONLY ABOUT 3 DAYS; DATE OF LAST ADMINISTRATION 24/JAN/2021
     Route: 061
     Dates: start: 20210122

REACTIONS (1)
  - Seborrhoea [Recovered/Resolved]

NARRATIVE: CASE EVENT DATE: 20210122
